FAERS Safety Report 11639836 (Version 2)
Quarter: 2015Q4

REPORT INFORMATION
  Report Type: Spontaneous
  Country: DK (occurrence: DK)
  Receive Date: 20151019
  Receipt Date: 20151020
  Transmission Date: 20160304
  Serious: Yes (Other)
  Sender: FDA-Public Use
  Company Number: PHHY2015DK018139

PATIENT
  Age: 44 Year
  Sex: Male

DRUGS (13)
  1. PREGABALIN. [Interacting]
     Active Substance: PREGABALIN
     Indication: ANXIETY
     Dosage: 75 MG, BID
     Route: 065
  2. PREGABALIN. [Interacting]
     Active Substance: PREGABALIN
     Dosage: 150 MG, MORNING
  3. PREGABALIN. [Interacting]
     Active Substance: PREGABALIN
     Dosage: 75 MG, EVENING
  4. PREGABALIN. [Interacting]
     Active Substance: PREGABALIN
     Dosage: 75 MG, EVENING
     Route: 065
  5. CLONAZEPAM. [Concomitant]
     Active Substance: CLONAZEPAM
     Dosage: 0.5 MG, QD
     Route: 065
  6. CLOZAPINE. [Interacting]
     Active Substance: CLOZAPINE
     Dosage: 150 MG, QD
     Route: 065
  7. LITHIUM. [Concomitant]
     Active Substance: LITHIUM
     Indication: SCHIZOPHRENIA, PARANOID TYPE
     Dosage: 18 MMOL, QD
     Route: 065
  8. CLOZAPINE. [Suspect]
     Active Substance: CLOZAPINE
     Indication: SCHIZOPHRENIA, PARANOID TYPE
     Dosage: 650 MG, QD
     Route: 065
  9. SERTINDOLE [Concomitant]
     Active Substance: SERTINDOLE
     Indication: SCHIZOPHRENIA, PARANOID TYPE
     Dosage: 16 MG, QD
     Route: 065
  10. PREGABALIN. [Interacting]
     Active Substance: PREGABALIN
     Dosage: 225 MG, MORNING
     Route: 065
  11. PREGABALIN. [Interacting]
     Active Substance: PREGABALIN
     Indication: SCHIZOPHRENIA, PARANOID TYPE
     Dosage: 75 MG, QD
     Route: 065
  12. CLOZAPINE. [Interacting]
     Active Substance: CLOZAPINE
     Dosage: 500 MG, QD
     Route: 065
  13. CLONAZEPAM. [Concomitant]
     Active Substance: CLONAZEPAM
     Indication: SCHIZOPHRENIA, PARANOID TYPE
     Dosage: 0.5 MG, BID
     Route: 065

REACTIONS (11)
  - Wound [Unknown]
  - Syncope [Unknown]
  - Seizure [Unknown]
  - Speech disorder [Unknown]
  - Depressed level of consciousness [Unknown]
  - Sleep disorder [Unknown]
  - Drug interaction [Unknown]
  - Psychotic disorder [Unknown]
  - Anxiety [Unknown]
  - Fall [Unknown]
  - Foot fracture [Unknown]
